FAERS Safety Report 7016062-1 (Version None)
Quarter: 2010Q3

REPORT INFORMATION
  Report Type: 
  Country: None (occurrence: None)
  Receive Date: 20100927
  Receipt Date: 20100712
  Transmission Date: 20110219
  Serious: No
  Sender: FDA-Public Use
  Company Number: US-ASTRAZENECA-2010SE32429

PATIENT
  Age: 779 Month
  Sex: Female
  Weight: 83 kg

DRUGS (5)
  1. ARIMIDEX [Suspect]
     Indication: BREAST CANCER
     Route: 048
     Dates: start: 20100401
  2. ADVAIR DISKUS 100/50 [Concomitant]
     Indication: ASTHMA
  3. NATURAL THYROID MEDICINE [Concomitant]
     Indication: HYPOTHYROIDISM
  4. NATURAL PROGESTERONE CREAM [Concomitant]
  5. NATURAL SUPPLEMENTS [Concomitant]

REACTIONS (1)
  - VITAMIN B12 DEFICIENCY [None]
